FAERS Safety Report 6244462-6 (Version None)
Quarter: 2009Q2

REPORT INFORMATION
  Report Type: 
  Country: None (occurrence: None)
  Receive Date: 20090623
  Receipt Date: 20090611
  Transmission Date: 20091009
  Serious: Yes (Life-Threatening, Hospitalization)
  Sender: FDA-Public Use
  Company Number: 2009AL003971

PATIENT
  Age: 49 Year
  Sex: Female

DRUGS (3)
  1. CITALOPRAM HYDROBROMIDE [Suspect]
     Dosage: PO
     Route: 048
  2. TEMAZEPAM [Concomitant]
  3. BENDROFLUMETHIAZIDE [Concomitant]

REACTIONS (3)
  - BLOOD SODIUM DECREASED [None]
  - CONVULSION [None]
  - GLASGOW COMA SCALE ABNORMAL [None]
